FAERS Safety Report 4564351-2 (Version None)
Quarter: 2005Q1

REPORT INFORMATION
  Report Type: 
  Country: None (occurrence: None)
  Receive Date: 20050128
  Receipt Date: 20050121
  Transmission Date: 20050727
  Serious: Yes (Other)
  Sender: FDA-Public Use
  Company Number: 2004S1003125

PATIENT
  Age: 40 Year
  Sex: Male
  Weight: 68.2 kg

DRUGS (6)
  1. LAMICTAL [Suspect]
     Route: 048
     Dates: start: 20040701
  2. GABITRIL [Suspect]
     Route: 065
     Dates: end: 20040701
  3. PHENYTEK [Suspect]
     Dosage: 200MG SEE DOSAGE TEXT
     Route: 065
     Dates: start: 20020801
  4. PHENYTEK [Suspect]
     Dosage: 300MG SEE DOSAGE TEXT
     Route: 048
     Dates: start: 20020801, end: 20041017
  5. ATORVASTATIN [Concomitant]
     Dosage: 40MG AT NIGHT
     Route: 065
     Dates: start: 20030101
  6. VALPROIC ACID [Concomitant]
     Dates: end: 20040924

REACTIONS (6)
  - ANTICONVULSANT DRUG LEVEL ABOVE THERAPEUTIC [None]
  - ANTICONVULSANT DRUG LEVEL BELOW THERAPEUTIC [None]
  - BACK INJURY [None]
  - DRUG INEFFECTIVE [None]
  - FALL [None]
  - GRAND MAL CONVULSION [None]
